FAERS Safety Report 17271380 (Version 1)
Quarter: 2020Q1

REPORT INFORMATION
  Report Type: Spontaneous
  Country: US (occurrence: US)
  Receive Date: 20200115
  Receipt Date: 20200115
  Transmission Date: 20200409
  Serious: Yes (Other)
  Sender: FDA-Public Use
  Company Number: US-AMGEN-USASP2020004336

PATIENT

DRUGS (2)
  1. BLINATUMOMAB [Suspect]
     Active Substance: BLINATUMOMAB
     Indication: MINIMAL RESIDUAL DISEASE
  2. BLINATUMOMAB [Suspect]
     Active Substance: BLINATUMOMAB
     Indication: PRECURSOR B-LYMPHOBLASTIC LYMPHOMA
     Dosage: UNK, QD
     Route: 042

REACTIONS (8)
  - Acute lymphocytic leukaemia [Unknown]
  - Headache [Unknown]
  - Cytokine release syndrome [Unknown]
  - Confusional state [Unknown]
  - Loss of consciousness [Unknown]
  - Aphasia [Unknown]
  - Encephalopathy [Unknown]
  - Tremor [Unknown]
